FAERS Safety Report 8853788 (Version 2)
Quarter: 2012Q4

REPORT INFORMATION
  Report Type: 
  Country: JP (occurrence: JP)
  Receive Date: 20121022
  Receipt Date: 20121108
  Transmission Date: 20130627
  Serious: Yes (Other)
  Sender: FDA-Public Use
  Company Number: JP-GE HEALTHCARE MEDICAL DIAGNOSTICS-OMPQ-NO-1210S-1071

PATIENT
  Age: 43 Year
  Sex: Male

DRUGS (1)
  1. OMNIPAQUE [Suspect]
     Indication: ABDOMINAL PAIN LOWER
     Route: 042
     Dates: start: 20121003, end: 20121003

REACTIONS (4)
  - Shock [Recovered/Resolved]
  - Blood pressure decreased [Recovered/Resolved]
  - Nausea [Recovered/Resolved]
  - Hypoaesthesia [Recovered/Resolved]
